FAERS Safety Report 13909627 (Version 1)
Quarter: 2017Q3

REPORT INFORMATION
  Report Type: Spontaneous
  Country: US (occurrence: US)
  Receive Date: 20170828
  Receipt Date: 20170828
  Transmission Date: 20171127
  Serious: No
  Sender: FDA-Public Use
  Company Number: US-PFIZER INC-2017369849

PATIENT
  Age: 55 Year
  Sex: Female

DRUGS (7)
  1. LEFLUNOMIDE. [Suspect]
     Active Substance: LEFLUNOMIDE
     Indication: RHEUMATOID ARTHRITIS
  2. NAPROSYN [Suspect]
     Active Substance: NAPROXEN
     Dosage: UNK
  3. HYDROXYZINE PAMOATE. [Suspect]
     Active Substance: HYDROXYZINE PAMOATE
     Dosage: UNK
  4. NAPROXEN. [Suspect]
     Active Substance: NAPROXEN
     Dosage: UNK
  5. PREGABALIN. [Suspect]
     Active Substance: PREGABALIN
     Dosage: UNK
  6. ASA [Suspect]
     Active Substance: ASPIRIN
     Dosage: UNK
  7. VISTARIL [Suspect]
     Active Substance: HYDROXYZINE PAMOATE
     Dosage: UNK

REACTIONS (1)
  - Drug hypersensitivity [Unknown]
